FAERS Safety Report 4310347-5 (Version None)
Quarter: 2004Q1

REPORT INFORMATION
  Report Type: 
  Country: None (occurrence: None)
  Receive Date: 20040302
  Receipt Date: 20040225
  Transmission Date: 20041129
  Serious: Yes (Hospitalization)
  Sender: FDA-Public Use
  Company Number: 001#2#2004-00037

PATIENT
  Sex: Female

DRUGS (9)
  1. ISOKET-RETARD-80 (ISOSORBIDE DINITRATE) [Suspect]
     Dosage: 1.80 MG (80 MG 1 IN 1 DAY(S))
     Route: 048
  2. AMLODIPINE [Suspect]
     Dosage: 5 MG (5MG 1 IN 1 DAY(S))
     Route: 048
  3. METOPROLOL (METOPROLOL) [Suspect]
     Route: 048
  4. RAMIPRIL [Suspect]
     Dosage: 2X 1/2 TBL./DAY
     Route: 048
  5. DOXAZOSIN MESYLATE [Suspect]
     Indication: HYPERTENSION
     Dosage: 4 MG (4MG 1 IN 1 DAY(S))
     Route: 048
  6. ACETYLSALICYLIC ACID SRT [Concomitant]
  7. ATORVASTATIN CALCIUM [Concomitant]
  8. TAMOXIFEN (TAMOXIFEN) [Concomitant]
  9. BEXTRA [Concomitant]

REACTIONS (7)
  - CORONARY ARTERY DISEASE [None]
  - DIARRHOEA [None]
  - DRUG INTERACTION [None]
  - HYPERTENSION [None]
  - MUSCLE CRAMP [None]
  - PAIN [None]
  - VOMITING [None]
